FAERS Safety Report 5923186-6 (Version None)
Quarter: 2008Q4

REPORT INFORMATION
  Report Type: 
  Country: None (occurrence: None)
  Receive Date: 20081020
  Receipt Date: 20081009
  Transmission Date: 20090506
  Serious: Yes (Other)
  Sender: FDA-Public Use
  Company Number: PL-JNJFOC-20081002233

PATIENT
  Sex: Male

DRUGS (2)
  1. CONCERTA [Suspect]
  2. CONCERTA [Suspect]
     Indication: ATTENTION DEFICIT/HYPERACTIVITY DISORDER
     Dosage: PER DAY FOR 2 WEEKS

REACTIONS (3)
  - ASOCIAL BEHAVIOUR [None]
  - DISTURBANCE IN ATTENTION [None]
  - SLEEP DISORDER [None]
